FAERS Safety Report 5127735-X (Version None)
Quarter: 2006Q4

REPORT INFORMATION
  Report Type: 
  Country: None (occurrence: None)
  Receive Date: 20061016
  Receipt Date: 20061012
  Transmission Date: 20070319
  Serious: Yes (Disabling)
  Sender: FDA-Public Use
  Company Number: GB-GLAXOSMITHKLINE-B0442062A

PATIENT
  Age: 80 Year
  Sex: Female
  Weight: 55 kg

DRUGS (5)
  1. ROSIGLITAZONE [Suspect]
     Indication: DIABETES MELLITUS
     Dosage: 8MG UNKNOWN
     Route: 048
     Dates: start: 20031101, end: 20060831
  2. ATORVASTATIN CALCIUM [Concomitant]
     Dosage: 40MG PER DAY
     Route: 065
     Dates: start: 20030101
  3. GLICLAZIDE [Concomitant]
     Dosage: 160MG TWICE PER DAY
     Route: 065
     Dates: start: 19930101
  4. METFORMIN HCL [Concomitant]
     Dosage: 500MG PER DAY
     Route: 065
     Dates: start: 20020101
  5. RAMIPRIL [Concomitant]
     Dosage: 5MG PER DAY
     Route: 065
     Dates: start: 20020101

REACTIONS (1)
  - MACULAR CYST [None]
